FAERS Safety Report 20893012 (Version 1)
Quarter: 2022Q2

REPORT INFORMATION
  Report Type: Report from Study
  Country: GB (occurrence: GB)
  Receive Date: 20220531
  Receipt Date: 20220531
  Transmission Date: 20220721
  Serious: Yes (Hospitalization, Other)
  Sender: FDA-Public Use
  Company Number: GB-JNJFOC-20220406230

PATIENT
  Age: 20 Year
  Sex: Male
  Weight: 78 kg

DRUGS (17)
  1. CETIRIZINE HYDROCHLORIDE [Suspect]
     Active Substance: CETIRIZINE HYDROCHLORIDE
     Dosage: UNK
     Route: 065
  2. DOXORUBICIN HYDROCHLORIDE [Suspect]
     Active Substance: DOXORUBICIN HYDROCHLORIDE
     Indication: Neoplasm
     Dosage: UNK, THERAPY DURATION : 110  DAYS
     Route: 065
     Dates: start: 20200430, end: 20200818
  3. TOPOTECAN HYDROCHLORIDE [Suspect]
     Active Substance: TOPOTECAN HYDROCHLORIDE
     Indication: Refractory cancer
     Dosage: 0.75 MG/M2 FREQ:21 D;(MAXIMUM 5 DAYS EVERY 21 DAYS), UNIT DOSE : 0.75 MG/M2, FREQUENCY TIME : 1 CYCL
     Route: 042
     Dates: start: 20220221
  4. CYCLOPHOSPHAMIDE [Suspect]
     Active Substance: CYCLOPHOSPHAMIDE
     Indication: Refractory cancer
     Dosage: 250 MG/M2 FREQ:21 D;(MAXIMUM 5 DAYS EVERY 21 DAYS), UNIT DOSE : 250 MG/M2, FREQUENCY TIME : 1 CYCLIC
     Route: 042
     Dates: start: 20220221
  5. DOCUSATE SODIUM [Suspect]
     Active Substance: DOCUSATE SODIUM
     Dosage: UNK
     Route: 065
  6. IFOSFAMIDE [Suspect]
     Active Substance: IFOSFAMIDE
     Indication: Neoplasm
     Dosage: UNK,THERAPY DURATION : 183  DAYS
     Route: 065
     Dates: start: 20170519, end: 20171118
  7. INSTILLAGEL [Suspect]
     Active Substance: CHLORHEXIDINE GLUCONATE\LIDOCAINE HYDROCHLORIDE
     Dosage: UNK
     Route: 065
  8. MESNA [Suspect]
     Active Substance: MESNA
     Indication: Neoplasm
     Dosage: UNK,THERAPY DURATION : 183  DAYS
     Route: 065
     Dates: start: 20170519, end: 20171118
  9. MORPHINE SULFATE [Suspect]
     Active Substance: MORPHINE SULFATE
     Dosage: UNK
     Route: 065
  10. VENETOCLAX [Suspect]
     Active Substance: VENETOCLAX
     Indication: Refractory cancer
     Dosage: 800 MILLIGRAM DAILY; UNIT DOSE : 800 MG , FREQUENCY : 1
     Route: 048
     Dates: start: 20220218
  11. ALUMINUM SUBACETATE\HYDROCORTISONE ACETATE\LIDOCAINE\ZINC OXIDE [Suspect]
     Active Substance: ALUMINUM SUBACETATE\HYDROCORTISONE ACETATE\LIDOCAINE\ZINC OXIDE
     Dosage: UNK
     Route: 065
  12. COTRIMOXAZOLE [Concomitant]
     Active Substance: SULFAMETHOXAZOLE\TRIMETHOPRIM
     Indication: Pneumocystis jirovecii pneumonia
     Dosage: (MONDAY, WEDNESDAY AND FRIDAY, 2 IN 1DAY), UNIT DOSE : 1920 MG , FREQUENCY : 1
     Route: 048
     Dates: start: 20220218
  13. LEVOTHYROXINE [Concomitant]
     Active Substance: LEVOTHYROXINE
     Indication: Hypothyroidism
     Dosage: 75 MICROGRAM DAILY;
     Route: 048
     Dates: start: 20200707
  14. LIPEGFILGRASTIM [Concomitant]
     Active Substance: LIPEGFILGRASTIM
     Indication: Prophylaxis
     Dosage: 6 MILLIGRAM DAILY; UNIT DOSE :  6 MG, FREQUENCY : 1 , THERAPY DURATION : 1 DAYS
     Route: 058
     Dates: start: 20220227, end: 20220227
  15. ONDANSETRON [Concomitant]
     Active Substance: ONDANSETRON
     Indication: Prophylaxis of nausea and vomiting
     Dosage: 72 MILLIGRAM DAILY;  (8 MG, 3 IN ONE DAY) (24 MG,3 IN 1 D), UNIT DOSE : 72 MG, FREQUENCY : 1
     Route: 065
     Dates: start: 20220218
  16. ACETAMINOPHEN [Concomitant]
     Active Substance: ACETAMINOPHEN
     Dosage: UNK
     Route: 065
     Dates: start: 20220308
  17. PIPERACILLIN SODIUM\TAZOBACTAM SODIUM [Concomitant]
     Active Substance: PIPERACILLIN SODIUM\TAZOBACTAM SODIUM
     Dosage: UNK
     Route: 065

REACTIONS (7)
  - Vomiting [Unknown]
  - Malaise [Unknown]
  - Accident [Unknown]
  - Haemorrhoids [Unknown]
  - Diarrhoea [Recovering/Resolving]
  - Back pain [Recovered/Resolved]
  - Febrile neutropenia [Recovered/Resolved]

NARRATIVE: CASE EVENT DATE: 20220301
